FAERS Safety Report 8583862-6 (Version None)
Quarter: 2012Q3

REPORT INFORMATION
  Report Type: 
  Country: None (occurrence: None)
  Receive Date: 20120810
  Receipt Date: 20120717
  Transmission Date: 20120928
  Serious: Yes (Hospitalization, Other)
  Sender: FDA-Public Use
  Company Number: US-009507513-2012SP000189

PATIENT

DRUGS (1)
  1. NUVARING [Suspect]
     Indication: CONTRACEPTION
     Dates: end: 20090106

REACTIONS (4)
  - MUSCLE STRAIN [None]
  - CYSTITIS [None]
  - BRONCHITIS [None]
  - PULMONARY EMBOLISM [None]
